FAERS Safety Report 19809809 (Version 1)
Quarter: 2021Q3

REPORT INFORMATION
  Report Type: Other
  Country: US (occurrence: US)
  Receive Date: 20210908
  Receipt Date: 20210908
  Transmission Date: 20211014
  Serious: Yes (Other)
  Sender: FDA-Public Use
  Company Number: US-ROCHE-2708926

PATIENT
  Age: 57 Year
  Sex: Female

DRUGS (13)
  1. ALECTINIB. [Suspect]
     Active Substance: ALECTINIB
     Route: 065
  2. PACLITAXEL. [Concomitant]
     Active Substance: PACLITAXEL
     Route: 065
  3. ALECTINIB. [Suspect]
     Active Substance: ALECTINIB
     Route: 065
  4. PEMETREXED. [Concomitant]
     Active Substance: PEMETREXED
     Dosage: FOR THREE CYCLES
     Route: 065
  5. BEVACIZUMAB. [Concomitant]
     Active Substance: BEVACIZUMAB
  6. ALECTINIB. [Suspect]
     Active Substance: ALECTINIB
     Indication: LUNG ADENOCARCINOMA STAGE III
     Route: 065
  7. ALECTINIB. [Suspect]
     Active Substance: ALECTINIB
     Dosage: IN THE MORNING
     Route: 065
  8. ATEZOLIZUMAB. [Concomitant]
     Active Substance: ATEZOLIZUMAB
     Route: 041
  9. CISPLATIN. [Concomitant]
     Active Substance: CISPLATIN
     Route: 065
  10. CARBOPLATIN. [Concomitant]
     Active Substance: CARBOPLATIN
  11. ALECTINIB. [Suspect]
     Active Substance: ALECTINIB
     Route: 065
  12. ALECTINIB. [Suspect]
     Active Substance: ALECTINIB
     Dosage: IN THE EVENING
     Route: 065
  13. DURVALUMAB. [Concomitant]
     Active Substance: DURVALUMAB
     Dosage: EVERY 2 WEEKS
     Route: 065

REACTIONS (1)
  - Rash maculo-papular [Recovered/Resolved]
